FAERS Safety Report 4402412-9 (Version None)
Quarter: 2004Q3

REPORT INFORMATION
  Report Type: 
  Country: None (occurrence: None)
  Receive Date: 20040715
  Receipt Date: 20040701
  Transmission Date: 20050211
  Serious: No
  Sender: FDA-Public Use
  Company Number: 2004-BP-05280NB

PATIENT

DRUGS (3)
  1. BI-SIFROL TABLETS (PRAMIPEXOLE DIHYDROCHLORIDE) (TA) [Suspect]
     Indication: PARKINSON'S DISEASE
     Dosage: 0.5 MG
     Route: 048
     Dates: start: 20040617, end: 20040626
  2. LEVODOPA (LEVODOPA)(UNK) [Concomitant]
  3. BUP-4 (PROPIVERINE HYDROCHLORIDE) (TA) [Concomitant]

REACTIONS (3)
  - ABNORMAL BEHAVIOUR [None]
  - ANOREXIA [None]
  - INAPPROPRIATE ANTIDIURETIC HORMONE SECRETION [None]
